FAERS Safety Report 5131491-9 (Version None)
Quarter: 2006Q4

REPORT INFORMATION
  Report Type: 
  Country: None (occurrence: None)
  Receive Date: 20061020
  Receipt Date: 20061010
  Transmission Date: 20070319
  Serious: Yes (Other)
  Sender: FDA-Public Use
  Company Number: US-JNJFOC-20061003173

PATIENT
  Sex: Female
  Weight: 60.33 kg

DRUGS (9)
  1. FENTANYL TRANSDERMAL SYSTEM [Suspect]
     Indication: BACK PAIN
     Route: 062
  2. FORTEO [Concomitant]
     Route: 058
  3. HUMALOG [Concomitant]
     Route: 058
  4. LANTUS [Concomitant]
     Route: 058
  5. SYNTHROID [Concomitant]
     Route: 048
  6. PLAQUENIL [Concomitant]
     Route: 048
  7. ZOCOR [Concomitant]
     Route: 048
  8. AMITRIPTYLINC [Concomitant]
     Route: 048
  9. B-12 [Concomitant]
     Route: 050

REACTIONS (4)
  - BLOOD GLUCOSE DECREASED [None]
  - DIZZINESS [None]
  - HEADACHE [None]
  - VOMITING [None]
